FAERS Safety Report 17720851 (Version 1)
Quarter: 2020Q3

REPORT INFORMATION
  Report Type: Spontaneous
  Country: US (occurrence: US)
  Receive Date: 20200428
  Receipt Date: 20200428
  Transmission Date: 20201105
  Serious: No
  Sender: FDA-Public Use
  Company Number: US-ROCHE-2549829

PATIENT
  Age: 82 Year
  Sex: Female

DRUGS (3)
  1. DUREZOL [Concomitant]
     Active Substance: DIFLUPREDNATE
     Route: 065
  2. BROLUCIZUMAB. [Suspect]
     Active Substance: BROLUCIZUMAB
     Indication: NEOVASCULAR AGE-RELATED MACULAR DEGENERATION
     Route: 065
  3. AVASTIN [Suspect]
     Active Substance: BEVACIZUMAB
     Indication: UVEITIS
     Route: 065

REACTIONS (3)
  - Visual impairment [Unknown]
  - Off label use [Unknown]
  - Intentional product use issue [Unknown]
